FAERS Safety Report 12813972 (Version 1)
Quarter: 2016Q4

REPORT INFORMATION
  Report Type: Spontaneous
  Country: GB (occurrence: GB)
  Receive Date: 20161005
  Receipt Date: 20161005
  Transmission Date: 20170207
  Serious: Yes (Other)
  Sender: FDA-Public Use
  Company Number: GB-BAYER-2016-192655

PATIENT
  Sex: Female

DRUGS (1)
  1. CIPROFLOXACIN. [Suspect]
     Active Substance: CIPROFLOXACIN
     Dosage: UNK

REACTIONS (10)
  - Fatigue [None]
  - Tendon injury [None]
  - Tendon rupture [None]
  - Burning sensation [None]
  - Balance disorder [None]
  - Neuropathy peripheral [None]
  - Paraesthesia [None]
  - Insomnia [None]
  - Mental impairment [None]
  - Pain [None]
